FAERS Safety Report 26204573 (Version 1)
Quarter: 2025Q4

REPORT INFORMATION
  Report Type: Spontaneous
  Country: JP (occurrence: JP)
  Receive Date: 20251227
  Receipt Date: 20251227
  Transmission Date: 20260118
  Serious: Yes (Death, Other)
  Sender: ROCHE
  Company Number: JP-ROCHE-10000470426

PATIENT
  Sex: Female

DRUGS (1)
  1. RITUXAN [Suspect]
     Active Substance: RITUXIMAB
     Indication: Paraneoplastic pemphigus
     Route: 041

REACTIONS (3)
  - Obliterative bronchiolitis [Fatal]
  - Opportunistic infection [Unknown]
  - Off label use [Unknown]
